FAERS Safety Report 9207857 (Version 1)
Quarter: 2013Q2

REPORT INFORMATION
  Report Type: Spontaneous
  Country: FR (occurrence: FR)
  Receive Date: 20130403
  Receipt Date: 20130403
  Transmission Date: 20140414
  Serious: Yes (Death)
  Sender: FDA-Public Use
  Company Number: FR-GLAXOSMITHKLINE-B0877780A

PATIENT
  Age: 77 Year
  Sex: Female

DRUGS (1)
  1. ARIXTRA [Suspect]
     Indication: THROMBOSIS PROPHYLAXIS
     Dosage: 2.5MG PER DAY
     Route: 058
     Dates: start: 201212, end: 20130115

REACTIONS (5)
  - Cerebral haemorrhage [Fatal]
  - Loss of consciousness [Unknown]
  - Fall [Unknown]
  - Coma [Unknown]
  - Incorrect drug administration duration [Unknown]
